FAERS Safety Report 6473821-1 (Version None)
Quarter: 2009Q4

REPORT INFORMATION
  Report Type: 
  Country: None (occurrence: None)
  Receive Date: 20091204
  Receipt Date: 20091124
  Transmission Date: 20100525
  Serious: Yes (Other)
  Sender: FDA-Public Use
  Company Number: JP-ROCHE-668845

PATIENT
  Sex: Male
  Weight: 27 kg

DRUGS (10)
  1. TAMIFLU [Suspect]
     Indication: INFLUENZA
     Dosage: ACTION TAKEN: DISCONTINUED.
     Route: 048
     Dates: start: 20091030, end: 20091030
  2. FLOMOX [Concomitant]
     Dosage: ACTION TAKEN: UNKNOWN
     Route: 048
     Dates: start: 20091029
  3. SURGAM [Concomitant]
     Route: 048
     Dates: start: 20091029, end: 20091029
  4. SURGAM [Concomitant]
     Route: 048
     Dates: start: 20091030, end: 20091030
  5. SURGAM [Concomitant]
     Route: 048
     Dates: start: 20091031, end: 20091102
  6. MUCODYNE [Concomitant]
     Route: 048
     Dates: start: 20091030, end: 20091030
  7. MUCODYNE [Concomitant]
     Route: 048
     Dates: start: 20091031, end: 20091102
  8. COUGHCODE-N [Concomitant]
     Route: 048
     Dates: start: 20091029, end: 20091029
  9. COUGHCODE-N [Concomitant]
     Route: 048
     Dates: start: 20091030, end: 20091030
  10. COUGHCODE-N [Concomitant]
     Route: 048
     Dates: start: 20091031, end: 20091102

REACTIONS (1)
  - ABNORMAL BEHAVIOUR [None]
